FAERS Safety Report 4585718-2 (Version None)
Quarter: 2005Q1

REPORT INFORMATION
  Report Type: 
  Country: None (occurrence: None)
  Receive Date: 20050214
  Receipt Date: 20040920
  Transmission Date: 20050727
  Serious: Yes (Death, Hospitalization)
  Sender: FDA-Public Use
  Company Number: 05-061

PATIENT
  Age: 73 Year
  Sex: Male

DRUGS (10)
  1. DEXAMETHASONE [Suspect]
     Indication: MYELOMA RECURRENCE
     Dosage: 40MG/DAY
     Dates: start: 20020414, end: 20020417
  2. DEXAMETHASONE [Suspect]
     Indication: MYELOMA RECURRENCE
     Dosage: 40MG/DAY
     Dates: start: 20020430, end: 20020503
  3. GENTAMICIN [Concomitant]
  4. DOCUSATE [Concomitant]
  5. SENNA [Concomitant]
  6. LACTULOSE [Concomitant]
  7. MORPHINE SULFATE [Concomitant]
  8. VITAMIN B COMPLEX CAP [Concomitant]
  9. PAMIDRONATE DISODIUM [Concomitant]
  10. ALLOPURINOL [Concomitant]

REACTIONS (11)
  - ASPIRATION [None]
  - BLOOD PRESSURE INCREASED [None]
  - BONE MARROW DEPRESSION [None]
  - BRADYCARDIA [None]
  - CEREBRAL ISCHAEMIA [None]
  - COMA [None]
  - DRUG TOXICITY [None]
  - ENCEPHALITIS [None]
  - GRAND MAL CONVULSION [None]
  - HAEMORRHAGE INTRACRANIAL [None]
  - THROMBOCYTOPENIA [None]
